FAERS Safety Report 9504512 (Version 1)
Quarter: 2013Q3

REPORT INFORMATION
  Report Type: Spontaneous
  Country: FR (occurrence: FR)
  Receive Date: 20130906
  Receipt Date: 20130906
  Transmission Date: 20140515
  Serious: Yes (Hospitalization)
  Sender: FDA-Public Use
  Company Number: FR-ROCHE-1270927

PATIENT
  Age: 54 Year
  Sex: Female

DRUGS (5)
  1. AVASTIN [Suspect]
     Indication: SMALL INTESTINE ADENOCARCINOMA
     Dosage: 25 MG/ML, LAST CYCLE IN MID-FEBRUARY 2013
     Route: 041
  2. FLUOROURACILE [Suspect]
     Indication: SMALL INTESTINE ADENOCARCINOMA
     Dosage: LAST CYCLE IN MID-FEBRUARY 2013
     Route: 041
  3. CAMPTO [Suspect]
     Indication: SMALL INTESTINE ADENOCARCINOMA
     Dosage: LAST CYCLE IN MID-FEBRUARY 2013
     Route: 041
  4. FOLINIC ACID [Concomitant]
  5. ILOMEDINE [Concomitant]

REACTIONS (1)
  - Skin necrosis [Recovering/Resolving]
